FAERS Safety Report 24928398 (Version 1)
Quarter: 2025Q1

REPORT INFORMATION
  Report Type: Spontaneous
  Country: US (occurrence: None)
  Receive Date: 20250204
  Receipt Date: 20250204
  Transmission Date: 20250409
  Serious: Yes (unspecified)
  Sender: FDA-CTU
  Company Number: None

PATIENT
  Age: 27 Year
  Sex: Female
  Weight: 95 kg

DRUGS (1)
  1. IOHEXOL [Suspect]
     Active Substance: IOHEXOL
     Indication: Investigation
     Route: 042
     Dates: start: 20241210, end: 20241210

REACTIONS (6)
  - Contrast media reaction [None]
  - Erythema of eyelid [None]
  - Swelling of eyelid [None]
  - Abdominal discomfort [None]
  - Chest discomfort [None]
  - Hypersensitivity [None]

NARRATIVE: CASE EVENT DATE: 20241210
